FAERS Safety Report 5605335-2 (Version None)
Quarter: 2008Q1

REPORT INFORMATION
  Report Type: 
  Country: None (occurrence: None)
  Receive Date: 20080129
  Receipt Date: 20080117
  Transmission Date: 20080703
  Serious: Yes (Hospitalization, Disabling)
  Sender: FDA-Public Use
  Company Number: AU-PFIZER INC-2005107720

PATIENT
  Age: 48 Year
  Sex: Male
  Weight: 60 kg

DRUGS (3)
  1. CABERGOLINE [Suspect]
     Indication: PARKINSON'S DISEASE
     Route: 048
  2. LEVODOPA [Concomitant]
     Dosage: FREQ:UNKNOWN
     Route: 065
  3. COMTAN [Concomitant]
     Dosage: FREQ:UNKNOWN
     Route: 065

REACTIONS (4)
  - CREPITATIONS [None]
  - DYSPNOEA [None]
  - HYPOXIA [None]
  - PLEURAL FIBROSIS [None]
